FAERS Safety Report 10660794 (Version 2)
Quarter: 2015Q1

REPORT INFORMATION
  Report Type: Spontaneous
  Country: FR (occurrence: FR)
  Receive Date: 20141217
  Receipt Date: 20150203
  Transmission Date: 20150720
  Serious: Yes (Hospitalization, Other)
  Sender: FDA-Public Use
  Company Number: FR-ALLERGAN-1425797US

PATIENT
  Age: 62 Year
  Sex: Female

DRUGS (6)
  1. LEVOTHYROX [Concomitant]
     Active Substance: LEVOTHYROXINE
     Dosage: 150 ?G, UNK
  2. EXFORGE [Concomitant]
     Active Substance: AMLODIPINE BESYLATE\VALSARTAN
  3. XANAX [Concomitant]
     Active Substance: ALPRAZOLAM
  4. INEXIUM [Concomitant]
     Active Substance: ESOMEPRAZOLE
  5. IMODIUM [Concomitant]
     Active Substance: LOPERAMIDE HYDROCHLORIDE
  6. TROSPIUM CHLORIDE UNK [Suspect]
     Active Substance: TROSPIUM CHLORIDE
     Indication: HYPERTONIC BLADDER
     Dosage: UNK
     Route: 048
     Dates: start: 201008, end: 20101023

REACTIONS (4)
  - Confusional state [Recovering/Resolving]
  - Agitation [Unknown]
  - Hallucination, visual [Recovering/Resolving]
  - Pyelonephritis [Unknown]

NARRATIVE: CASE EVENT DATE: 20100925
